FAERS Safety Report 19060268 (Version 3)
Quarter: 2021Q2

REPORT INFORMATION
  Report Type: Spontaneous
  Country: US (occurrence: US)
  Receive Date: 20210326
  Receipt Date: 20210610
  Transmission Date: 20210717
  Serious: No
  Sender: FDA-Public Use
  Company Number: US-SA-2021SA089777

PATIENT
  Age: 18 Year
  Sex: Male

DRUGS (1)
  1. ADMELOG [Suspect]
     Active Substance: INSULIN LISPRO
     Indication: TYPE 1 DIABETES MELLITUS
     Dosage: UNK
     Route: 065
     Dates: start: 201909

REACTIONS (4)
  - Product quality issue [Unknown]
  - Poor quality product administered [Unknown]
  - Blood glucose increased [Unknown]
  - Drug ineffective [Unknown]
